FAERS Safety Report 25477133 (Version 1)
Quarter: 2025Q2

REPORT INFORMATION
  Report Type: Spontaneous
  Country: CA (occurrence: CA)
  Receive Date: 20250625
  Receipt Date: 20250625
  Transmission Date: 20250716
  Serious: Yes (Death)
  Sender: BAUSCH AND LOMB
  Company Number: CA-BAUSCH-BL-2025-007823

PATIENT
  Age: 72 Year
  Sex: Male

DRUGS (1)
  1. RIFAXIMIN [Suspect]
     Active Substance: RIFAXIMIN
     Indication: Hepatic encephalopathy
     Route: 048
     Dates: start: 20240829

REACTIONS (1)
  - Death [Fatal]
